FAERS Safety Report 9054863 (Version 2)
Quarter: 2013Q1

REPORT INFORMATION
  Report Type: Spontaneous
  Country: FR (occurrence: FR)
  Receive Date: 20130208
  Receipt Date: 20130214
  Transmission Date: 20140127
  Serious: Yes (Hospitalization)
  Sender: FDA-Public Use
  Company Number: FR-PFIZER INC-2013048017

PATIENT
  Age: 49 Year
  Sex: Male

DRUGS (3)
  1. LYRICA [Suspect]
     Dosage: 50 MG, 2X/DAY
     Route: 048
     Dates: end: 20121127
  2. EUPANTOL [Suspect]
     Dosage: 20 MG, 1X/DAY
     Route: 048
     Dates: end: 20121127
  3. LASILIX [Suspect]
     Dosage: 40 MG, 2X/DAY
     Route: 048
     Dates: end: 20121127

REACTIONS (1)
  - Neutropenia [Recovered/Resolved]
